FAERS Safety Report 16769972 (Version 5)
Quarter: 2022Q2

REPORT INFORMATION
  Report Type: Report from Study
  Country: US (occurrence: None)
  Receive Date: 20190904
  Receipt Date: 20220524
  Transmission Date: 20220720
  Serious: Yes (Hospitalization)
  Sender: FDA-Public Use
  Company Number: US-ROCHE-2397621

PATIENT
  Age: 72 Year
  Sex: Female
  Weight: 54.5 kg

DRUGS (21)
  1. POLATUZUMAB VEDOTIN [Suspect]
     Active Substance: POLATUZUMAB VEDOTIN
     Indication: Diffuse large B-cell lymphoma
     Dosage: FOR 6 CYCLES?DATE OF MOST RECENT DOSE OF POLATUZUMAB VEDOTIN PRIOR TO SAE ONSET: 16/AUG/2019
     Route: 042
     Dates: start: 20190501
  2. PLACEBO [Suspect]
     Active Substance: UNSPECIFIED INGREDIENT
     Indication: Diffuse large B-cell lymphoma
     Dosage: FOR 6 CYCLES?DATE OF MOST RECENT DOSE OF PLACEBO PRIOR TO SAE ONSET: 16/AUG/2019
     Route: 042
     Dates: start: 20190501
  3. RITUXIMAB [Suspect]
     Active Substance: RITUXIMAB
     Indication: Diffuse large B-cell lymphoma
     Dosage: FOR 8 CYCLES?DATE OF MOST RECENT DOSE OF RITUXIMAB 589 MG PRIOR TO SAE ONSET: 16/AUG/2019
     Route: 042
     Dates: start: 20190501
  4. DOXORUBICIN [Suspect]
     Active Substance: DOXORUBICIN
     Indication: Diffuse large B-cell lymphoma
     Dosage: FOR 6 CYCLES?DATE OF MOST RECENT DOSE OF DOXORUBICIN OF 79 MG PRIOR TO SAE ONSET: 16/AUG/2019
     Route: 042
     Dates: start: 20190501
  5. CYCLOPHOSPHAMIDE [Suspect]
     Active Substance: CYCLOPHOSPHAMIDE
     Indication: Diffuse large B-cell lymphoma
     Dosage: FOR 6 CYCLES?DATE OF MOST RECENT DOSE OF CYCLOPHOSPHAMIDE 1178 MG PRIOR TO SAE ONSET: 16/AUG/2019
     Route: 042
     Dates: start: 20190501
  6. PREDNISONE [Suspect]
     Active Substance: PREDNISONE
     Indication: Diffuse large B-cell lymphoma
     Dosage: FOR 6 CYCLES?DATE OF MOST RECENT DOSE OF PREDNISONE 100 MG PRIOR TO SAE BECAME SERIOUS: 20/AUG/2019
     Route: 048
     Dates: start: 20190501
  7. AMOXICILLIN [Concomitant]
     Active Substance: AMOXICILLIN
     Route: 048
  8. POLYETHYLENE GLYCOL [Concomitant]
     Active Substance: POLYETHYLENE GLYCOL
     Route: 048
  9. ACETAMINOPHEN [Concomitant]
     Active Substance: ACETAMINOPHEN
     Route: 048
  10. GLYCERIN;POLYSORBATE 80 [Concomitant]
     Indication: Dry eye
     Route: 047
  11. OXYCODONE [Concomitant]
     Active Substance: OXYCODONE
     Route: 048
     Dates: start: 20190412
  12. AMLODIPINE [Concomitant]
     Active Substance: AMLODIPINE BESYLATE
     Indication: Hypertension
     Route: 048
     Dates: start: 20180927
  13. ELAVIL [Concomitant]
     Active Substance: AMITRIPTYLINE HYDROCHLORIDE
     Indication: Insomnia
     Route: 048
  14. FERROUS SULFATE [Concomitant]
     Active Substance: FERROUS SULFATE
     Indication: Malabsorption
     Route: 048
     Dates: start: 20180927
  15. CHOLECALCIFEROL [Concomitant]
     Active Substance: CHOLECALCIFEROL
     Route: 048
     Dates: start: 20141013
  16. CYCLOSPORINE [Concomitant]
     Active Substance: CYCLOSPORINE
     Indication: Dry eye
     Route: 047
     Dates: start: 20141013
  17. CELEBREX [Concomitant]
     Active Substance: CELECOXIB
     Indication: Osteoarthritis
     Route: 048
     Dates: start: 20140430
  18. DOCUSATE\SENNOSIDES [Concomitant]
     Active Substance: DOCUSATE\SENNOSIDES
     Route: 048
     Dates: start: 20190412
  19. HUMAN RED BLOOD CELL [Concomitant]
     Active Substance: HUMAN RED BLOOD CELL
     Dosage: DOSE: 1 UNIT
     Route: 042
     Dates: start: 20190826, end: 20190826
  20. METHOTREXATE [Concomitant]
     Active Substance: METHOTREXATE
     Indication: Lumbar puncture
     Route: 037
     Dates: start: 20190814, end: 20190814
  21. TYLENOL [Concomitant]
     Active Substance: ACETAMINOPHEN
     Indication: Limb injury
     Route: 048
     Dates: start: 20190803, end: 20190805

REACTIONS (1)
  - Mucosal inflammation [Recovered/Resolved]

NARRATIVE: CASE EVENT DATE: 20190816
